FAERS Safety Report 4679524-8 (Version None)
Quarter: 2005Q2

REPORT INFORMATION
  Report Type: 
  Country: None (occurrence: None)
  Receive Date: 20050602
  Receipt Date: 20050523
  Transmission Date: 20051028
  Serious: Yes (Hospitalization, Other)
  Sender: FDA-Public Use
  Company Number: SE-JNJFOC-20050203059

PATIENT
  Age: 71 Year
  Sex: Female
  Weight: 60 kg

DRUGS (7)
  1. REMICADE [Suspect]
     Indication: RHEUMATOID ARTHRITIS
     Route: 042
  2. METHOTREXATE [Concomitant]
     Route: 049
  3. FOLACIN [Concomitant]
     Route: 065
  4. FOLACIN [Concomitant]
     Route: 065
  5. FOSAMAX [Concomitant]
     Route: 065
  6. CALCICHEW D3 [Concomitant]
     Route: 049
  7. PRONAXEN [Concomitant]
     Route: 065

REACTIONS (1)
  - TUBERCULOSIS [None]
